FAERS Safety Report 13076369 (Version 1)
Quarter: 2016Q4

REPORT INFORMATION
  Report Type: Spontaneous
  Country: US (occurrence: US)
  Receive Date: 20161229
  Receipt Date: 20161229
  Transmission Date: 20170207
  Serious: Yes (Hospitalization)
  Sender: FDA-Public Use
  Company Number: None

PATIENT
  Age: 54 Year
  Sex: Female

DRUGS (19)
  1. ASA [Concomitant]
     Active Substance: ASPIRIN
  2. FUROSEMIDE. [Concomitant]
     Active Substance: FUROSEMIDE
  3. NPH INSULIN [Concomitant]
     Active Substance: INSULIN BEEF
  4. METOPROLOL TARTRATE. [Concomitant]
     Active Substance: METOPROLOL TARTRATE
  5. FELODIPINE. [Concomitant]
     Active Substance: FELODIPINE
  6. REVLIMID [Suspect]
     Active Substance: LENALIDOMIDE
     Indication: ACUTE MYELOID LEUKAEMIA
     Route: 048
     Dates: start: 20160218, end: 20160428
  7. PANTOPRAZOLE [Concomitant]
     Active Substance: PANTOPRAZOLE SODIUM
  8. METFORMIN [Concomitant]
     Active Substance: METFORMIN HYDROCHLORIDE
  9. K-TAB [Concomitant]
     Active Substance: POTASSIUM CHLORIDE
  10. DEXAMETHASONE. [Concomitant]
     Active Substance: DEXAMETHASONE
  11. LEVOTHYROXINE. [Concomitant]
     Active Substance: LEVOTHYROXINE
  12. VENLAFAXINE [Concomitant]
     Active Substance: VENLAFAXINE HYDROCHLORIDE
  13. NORCO [Concomitant]
     Active Substance: ACETAMINOPHEN\HYDROCODONE BITARTRATE
  14. CLONIDINE. [Concomitant]
     Active Substance: CLONIDINE
  15. ATORVASTATIN [Concomitant]
     Active Substance: ATORVASTATIN
  16. LOSARTAN. [Concomitant]
     Active Substance: LOSARTAN
  17. PROCHLOPERAZINE [Concomitant]
  18. ACYCLOVIR. [Concomitant]
     Active Substance: ACYCLOVIR
  19. NORTRIPTYLINE [Concomitant]
     Active Substance: NORTRIPTYLINE

REACTIONS (3)
  - Pulmonary embolism [None]
  - Pneumonia [None]
  - Cardiac failure [None]

NARRATIVE: CASE EVENT DATE: 20160428
